FAERS Safety Report 13773253 (Version 1)
Quarter: 2017Q3

REPORT INFORMATION
  Report Type: Spontaneous
  Country: US (occurrence: US)
  Receive Date: 20170720
  Receipt Date: 20170720
  Transmission Date: 20171127
  Serious: No
  Sender: FDA-Public Use
  Company Number: US-GALDERMA-US16003878

PATIENT
  Age: 74 Year
  Sex: Female

DRUGS (4)
  1. ORACEA [Suspect]
     Active Substance: DOXYCYCLINE
     Indication: ROSACEA
     Dosage: 40 MG
     Route: 048
     Dates: end: 2014
  2. CETAPHIL GENTLE SKIN CLEANSER [Concomitant]
     Active Substance: COSMETICS
     Indication: THERAPEUTIC SKIN CARE TOPICAL
     Route: 061
  3. ACYCLOVIR. [Concomitant]
     Active Substance: ACYCLOVIR
     Indication: HERPES VIRUS INFECTION
     Route: 048
  4. BOOTS NO.7 FOUNDATION [Concomitant]
     Indication: PRODUCT USE IN UNAPPROVED INDICATION
     Route: 061
     Dates: end: 201605

REACTIONS (1)
  - Fungal infection [Recovered/Resolved]

NARRATIVE: CASE EVENT DATE: 2014
